FAERS Safety Report 10905970 (Version 2)
Quarter: 2015Q2

REPORT INFORMATION
  Report Type: Spontaneous
  Country: GB (occurrence: GB)
  Receive Date: 20150311
  Receipt Date: 20150520
  Transmission Date: 20150821
  Serious: Yes (Death)
  Sender: FDA-Public Use
  Company Number: PHHY2015GB025766

PATIENT
  Age: 65 Year
  Sex: Female
  Weight: 72 kg

DRUGS (17)
  1. AMLODIPINE BESILATE [Concomitant]
     Active Substance: AMLODIPINE BESYLATE
     Indication: ESSENTIAL HYPERTENSION
     Dosage: 10 MG, QD
     Route: 065
     Dates: start: 20110801, end: 20150122
  2. DEXAMETASON [Concomitant]
     Active Substance: DEXAMETHASONE
     Dosage: 8 MG, QD
     Dates: end: 20150122
  3. LISINOPRIL. [Concomitant]
     Active Substance: LISINOPRIL
     Indication: ESSENTIAL HYPERTENSION
     Dosage: 80 MG, QD
     Route: 065
     Dates: start: 20090216, end: 20150122
  4. TRIMETHOPRIM. [Concomitant]
     Active Substance: TRIMETHOPRIM
     Indication: PRODUCT USED FOR UNKNOWN INDICATION
     Dosage: 200 MG, BID
     Route: 065
     Dates: start: 20141222, end: 20141223
  5. ZOPICLONE [Concomitant]
     Active Substance: ZOPICLONE
     Indication: PRODUCT USED FOR UNKNOWN INDICATION
     Dosage: 7.5 MG, QD (AT NIGHT)
     Route: 065
     Dates: start: 20100506, end: 20150122
  6. NYSTATIN. [Concomitant]
     Active Substance: NYSTATIN
     Indication: ORAL CANDIDIASIS
     Dosage: 1 ML, QID (100,000 U/ML)
     Route: 048
     Dates: start: 20150114, end: 20150119
  7. CARBOPLATIN. [Suspect]
     Active Substance: CARBOPLATIN
     Indication: SMALL CELL LUNG CANCER
     Dosage: FIRST DOSE OF COURSE OF CHEMOTHERAPY GIVEN IN HOSPITAL 1ST OF 4 CYCLES
     Route: 042
     Dates: start: 20150116, end: 20150117
  8. FLUCONAZOLE. [Concomitant]
     Active Substance: FLUCONAZOLE
     Indication: PRODUCT USED FOR UNKNOWN INDICATION
     Route: 065
     Dates: start: 20150119, end: 20150122
  9. NITROFURANTOIN. [Concomitant]
     Active Substance: NITROFURANTOIN
     Indication: URINARY TRACT INFECTION
     Dosage: 100 MG, BID
     Route: 065
     Dates: start: 20141224, end: 20141231
  10. AMOXICILLIN. [Concomitant]
     Active Substance: AMOXICILLIN
     Indication: LOWER RESPIRATORY TRACT INFECTION
     Dosage: 500 MG, TID
     Route: 065
     Dates: start: 20141231, end: 20150106
  11. ATORVASTATIN [Concomitant]
     Active Substance: ATORVASTATIN
     Indication: PRODUCT USED FOR UNKNOWN INDICATION
     Dosage: 20 MG, QD (AT NIGHT)
     Route: 065
     Dates: start: 20090904, end: 20150122
  12. ORAMORPH SR SUSTAINED RELEASE [Concomitant]
     Active Substance: MORPHINE SULFATE
     Indication: PRODUCT USED FOR UNKNOWN INDICATION
     Dosage: 2.5 - 5ML WHEN REQUIRED
     Route: 065
     Dates: start: 20141231, end: 20150122
  13. QUININE SULFATE. [Concomitant]
     Active Substance: QUININE SULFATE
     Indication: MUSCLE SPASMS
     Dosage: 300 MG, QD (AT NIGHT)
     Route: 065
     Dates: start: 20090810, end: 20150122
  14. DEXAMETASON [Concomitant]
     Active Substance: DEXAMETHASONE
     Indication: PRODUCT USED FOR UNKNOWN INDICATION
     Dosage: 8 MG, BID
     Route: 065
     Dates: start: 20150107
  15. ETOPOSIDE. [Suspect]
     Active Substance: ETOPOSIDE
     Indication: SMALL CELL LUNG CANCER
     Dosage: FIRST DOSE OF COURSE OF CHEMOTHERAPY GIVEN IN HOSPITAL 1ST OF 4 CYCLES
     Route: 042
     Dates: start: 20150116, end: 20150117
  16. METFORMIN [Concomitant]
     Active Substance: METFORMIN HYDROCHLORIDE
     Indication: TYPE 2 DIABETES MELLITUS
     Dosage: 500 MG, TID
     Route: 065
     Dates: start: 20090417, end: 20090422
  17. OMEPRAZOLE. [Concomitant]
     Active Substance: OMEPRAZOLE
     Indication: GASTROOESOPHAGEAL REFLUX DISEASE
     Dosage: 20 MG, QD
     Route: 065
     Dates: start: 20090820, end: 20150122

REACTIONS (2)
  - Malaise [Not Recovered/Not Resolved]
  - Leukopenia [Fatal]

NARRATIVE: CASE EVENT DATE: 20150121
